FAERS Safety Report 24242579 (Version 2)
Quarter: 2024Q3

REPORT INFORMATION
  Report Type: Spontaneous
  Country: LT (occurrence: LT)
  Receive Date: 20240823
  Receipt Date: 20240830
  Transmission Date: 20241016
  Serious: Yes (Life-Threatening, Hospitalization)
  Sender: BAYER
  Company Number: LT-BAYER-2024A119494

PATIENT
  Age: 31 Year
  Sex: Female

DRUGS (2)
  1. MIRENA [Suspect]
     Active Substance: LEVONORGESTREL
     Indication: Heavy menstrual bleeding
     Dosage: 20?G/DAY
     Route: 015
     Dates: start: 2023, end: 202408
  2. MIRENA [Suspect]
     Active Substance: LEVONORGESTREL
     Indication: Dysmenorrhoea

REACTIONS (7)
  - Uterine haemorrhage [None]
  - Hepatic cyst [None]
  - Breast cyst [None]
  - Neoplasm [None]
  - Alopecia [None]
  - Fear of surgery [None]
  - Discomfort [None]

NARRATIVE: CASE EVENT DATE: 20240815
